FAERS Safety Report 8826497 (Version 1)
Quarter: 2012Q4

REPORT INFORMATION
  Report Type: 
  Country: GB (occurrence: GB)
  Receive Date: 20121005
  Receipt Date: 20121005
  Transmission Date: 20130627
  Serious: Yes (Life-Threatening)
  Sender: FDA-Public Use
  Company Number: GB-WATSON-2012-16846

PATIENT
  Age: 45 Year
  Sex: Male

DRUGS (4)
  1. MIRTAZAPINE (UNKNOWN) [Suspect]
     Indication: PRODUCT USED FOR UNKNOWN INDICATION
     Route: 048
  2. LORATADINE [Suspect]
     Indication: PRODUCT USED FOR UNKNOWN INDICATION
     Dosage: UNK
     Route: 048
  3. PREGABALIN [Suspect]
     Indication: PRODUCT USED FOR UNKNOWN INDICATION
     Dosage: UNK
     Route: 048
  4. DIHYDROCODEINE [Suspect]
     Indication: PRODUCT USED FOR UNKNOWN INDICATION
     Dosage: UNK
     Route: 048

REACTIONS (7)
  - Blood creatine phosphokinase increased [Unknown]
  - Serotonin syndrome [Unknown]
  - Chromaturia [Unknown]
  - Myoclonus [Unknown]
  - Hyperpyrexia [Unknown]
  - Somnolence [Unknown]
  - Overdose [Unknown]
